FAERS Safety Report 17519033 (Version 1)
Quarter: 2020Q1

REPORT INFORMATION
  Report Type: Spontaneous
  Country: CA (occurrence: CA)
  Receive Date: 20200310
  Receipt Date: 20200310
  Transmission Date: 20200409
  Serious: Yes (Death, Hospitalization)
  Sender: FDA-Public Use
  Company Number: CA-TEVA-2020-CA-1197991

PATIENT
  Age: 80 Year
  Sex: Female

DRUGS (2)
  1. DICLOFENAC W/MISOPROSTOL [Suspect]
     Active Substance: DICLOFENAC SODIUM\MISOPROSTOL
     Indication: RHEUMATOID ARTHRITIS
     Dosage: 2 DOSAGE FORMS DAILY;
     Route: 048
  2. METHOTREXATE. [Interacting]
     Active Substance: METHOTREXATE
     Indication: RHEUMATOID ARTHRITIS
     Route: 048

REACTIONS (5)
  - Nephropathy toxic [Fatal]
  - Toxicity to various agents [Fatal]
  - Drug interaction [Fatal]
  - Pancytopenia [Fatal]
  - Stomatitis [Fatal]
